FAERS Safety Report 4948971-9 (Version None)
Quarter: 2006Q1

REPORT INFORMATION
  Report Type: 
  Country: None (occurrence: None)
  Receive Date: 20060321
  Receipt Date: 20060310
  Transmission Date: 20060701
  Serious: Yes (Hospitalization)
  Sender: FDA-Public Use
  Company Number: PL-BRISTOL-MYERS SQUIBB COMPANY-13309893

PATIENT
  Age: 52 Year
  Sex: Male
  Weight: 109 kg

DRUGS (6)
  1. CISPLATIN [Suspect]
     Indication: BLADDER CANCER
     Dates: start: 20040319, end: 20040706
  2. PACLITAXEL [Suspect]
     Indication: BLADDER CANCER
     Dates: start: 20040319, end: 20040713
  3. GEMCITABINE [Suspect]
     Indication: BLADDER CANCER
     Dates: start: 20040319, end: 20040713
  4. ONDANSETRON [Concomitant]
     Dates: start: 20040322
  5. OMEPRAZOLE [Concomitant]
     Dates: start: 20040322
  6. CETIRIZINE [Concomitant]
     Dates: start: 20040501

REACTIONS (2)
  - BACTERIAL SEPSIS [None]
  - SEPSIS [None]
